FAERS Safety Report 8823290 (Version 1)
Quarter: 2012Q4

REPORT INFORMATION
  Report Type: 
  Country: US (occurrence: US)
  Receive Date: 20121003
  Receipt Date: 20121003
  Transmission Date: 20130627
  Serious: Yes (Hospitalization)
  Sender: FDA-Public Use
  Company Number: US-ROCHE-1135293

PATIENT
  Sex: Female

DRUGS (5)
  1. HERCEPTIN [Suspect]
     Indication: BREAST CANCER
     Route: 042
  2. CYTOXAN [Suspect]
     Indication: BREAST CANCER
  3. TAXOTERE [Suspect]
     Indication: BREAST CANCER
  4. NEULASTA [Concomitant]
  5. LASIX [Concomitant]

REACTIONS (5)
  - Oxygen saturation abnormal [Recovered/Resolved]
  - Lung infiltration [Recovered/Resolved]
  - Respiratory distress [Recovered/Resolved]
  - Bone pain [Recovered/Resolved]
  - Pyrexia [Recovering/Resolving]
